FAERS Safety Report 20758312 (Version 1)
Quarter: 2022Q2

REPORT INFORMATION
  Report Type: Spontaneous
  Country: US (occurrence: US)
  Receive Date: 20220427
  Receipt Date: 20220427
  Transmission Date: 20220721
  Serious: No
  Sender: FDA-Public Use
  Company Number: US-MYLANLABS-2022M1026314

PATIENT
  Age: 72 Year
  Sex: Female

DRUGS (1)
  1. ACYCLOVIR [Suspect]
     Active Substance: ACYCLOVIR
     Indication: Herpes simplex
     Dosage: 5 PERCENT
     Dates: start: 20220406

REACTIONS (3)
  - Nasal discomfort [Unknown]
  - Accidental exposure to product [Unknown]
  - Expired product administered [Unknown]

NARRATIVE: CASE EVENT DATE: 20220406
